FAERS Safety Report 8756302 (Version 3)
Quarter: 2014Q1

REPORT INFORMATION
  Report Type: Spontaneous
  Country: US (occurrence: US)
  Receive Date: 20120828
  Receipt Date: 20140303
  Transmission Date: 20141002
  Serious: Yes (Hospitalization)
  Sender: FDA-Public Use
  Company Number: US-B.I. PHARMACEUTICALS,INC./RIDGEFIELD-2010-BP-10574BP

PATIENT
  Age: 73 Year
  Sex: Female

DRUGS (22)
  1. MIRAPEX [Suspect]
     Indication: RESTLESS LEGS SYNDROME
     Route: 048
  2. ASPIRIN [Concomitant]
     Indication: CEREBROVASCULAR ACCIDENT
     Dosage: 325 MG
     Route: 048
  3. ASPIRIN [Concomitant]
     Indication: CEREBROVASCULAR ACCIDENT PROPHYLAXIS
  4. ASPIRIN [Concomitant]
     Indication: HYPERTENSION
  5. LORAZEPAM [Concomitant]
     Indication: ANXIETY
     Dosage: 1 MG
     Route: 048
  6. DILTIAZEM [Concomitant]
     Indication: HYPERTENSION
     Route: 065
  7. HYDROCHLOROTHIAZIDE [Concomitant]
     Indication: HYPERTENSION
     Route: 065
  8. SERTALINE [Concomitant]
     Indication: DEPRESSION
     Route: 048
  9. SIMVASTIN [Concomitant]
     Indication: BLOOD CHOLESTEROL INCREASED
     Route: 065
  10. IPRATROPIUM BROMIDE [Concomitant]
     Indication: DYSPNOEA
     Route: 055
  11. CRESTOR [Concomitant]
     Indication: BLOOD CHOLESTEROL INCREASED
     Route: 048
  12. FUROSEMIDE [Concomitant]
     Indication: SWELLING
     Dosage: 40 MG
     Route: 048
  13. POTASSIUM [Concomitant]
     Indication: SUPPLEMENTATION THERAPY
     Route: 048
  14. MORPHINE [Concomitant]
     Indication: CANCER PAIN
     Dosage: 15 MG
     Route: 048
  15. MORPHINE [Concomitant]
     Indication: PAIN
     Route: 065
  16. ALENDRONATE [Concomitant]
     Indication: BONE DISORDER
     Dosage: 10 MG
     Route: 048
  17. ZOLOFT [Concomitant]
     Indication: DEPRESSION
     Dosage: 100 MG
     Route: 048
  18. MIRAPEX [Suspect]
     Indication: RESTLESS LEGS SYNDROME
     Dosage: 0.5 MG
     Route: 048
     Dates: start: 2009
  19. MIRAPEX [Suspect]
     Dosage: 1 MG
     Route: 048
     Dates: start: 201201, end: 20130731
  20. MIRAPEX [Suspect]
     Dosage: 1.5 MG
     Route: 048
     Dates: start: 20130801
  21. MIRAPEX [Suspect]
     Dosage: 1 MG
     Route: 065
     Dates: start: 20111028
  22. MIRAPEX [Suspect]
     Route: 065
     Dates: start: 201401

REACTIONS (13)
  - Laceration [Recovered/Resolved]
  - Syncope [Recovered/Resolved]
  - Fall [Recovered/Resolved]
  - Drug effect decreased [Not Recovered/Not Resolved]
  - Night sweats [Not Recovered/Not Resolved]
  - Dizziness [Not Recovered/Not Resolved]
  - Pain in extremity [Not Recovered/Not Resolved]
  - Nasopharyngitis [Not Recovered/Not Resolved]
  - Insomnia [Not Recovered/Not Resolved]
  - Restless legs syndrome [Not Recovered/Not Resolved]
  - Gait disturbance [Not Recovered/Not Resolved]
  - Drug ineffective [Recovered/Resolved]
  - Off label use [Recovered/Resolved]
